FAERS Safety Report 6287273-8 (Version None)
Quarter: 2009Q3

REPORT INFORMATION
  Report Type: 
  Country: None (occurrence: None)
  Receive Date: 20090728
  Receipt Date: 20090717
  Transmission Date: 20100115
  Serious: Yes (Hospitalization, Other)
  Sender: FDA-Public Use
  Company Number: PHHY2009BR29915

PATIENT
  Age: 65 Year
  Sex: Female
  Weight: 58 kg

DRUGS (12)
  1. FORASEQ [Suspect]
     Indication: EMPHYSEMA
     Dosage: ONE CAPSULE OF EACH ACTIVE IN THE MORNING AND ONE CAPSULE OF EACH ACTIVE AT NIGHT
     Dates: start: 20070701
  2. FORASEQ [Suspect]
     Indication: ASTHMA
  3. FORASEQ [Suspect]
     Indication: BRONCHITIS
  4. FORASEQ [Suspect]
     Indication: CHRONIC OBSTRUCTIVE PULMONARY DISEASE
  5. FLUOXETINE [Concomitant]
     Indication: DEPRESSION
     Dosage: 20 MG MANIPULATED, ONE CAPSULE DAILY
     Route: 048
     Dates: start: 20090401
  6. LEXOTAN [Concomitant]
     Indication: ANXIETY
     Dosage: 3 MG, BID
     Route: 048
     Dates: start: 19890701
  7. LEXOTAN [Concomitant]
     Indication: STRESS
     Dosage: 3 MG, QD
     Route: 048
  8. TAMIRAM [Concomitant]
     Dosage: UNK
     Dates: start: 20080701
  9. FLUTICASONE [Concomitant]
     Indication: RHINITIS
     Dosage: ONE APPLICATION IN EACH NOSTRIL
     Route: 045
  10. SPIRIVA [Concomitant]
     Indication: CHRONIC OBSTRUCTIVE PULMONARY DISEASE
     Dosage: UNK
     Dates: start: 20090401
  11. PRELONE [Concomitant]
     Dosage: 5 FIRST DAYS, 2 TABLETS DAILY
     Route: 048
  12. OMEPRAZOLE [Concomitant]
     Dosage: ONE CAPSULE DAILY
     Route: 048

REACTIONS (8)
  - DEPRESSION [None]
  - GAIT DISTURBANCE [None]
  - INCORRECT ROUTE OF DRUG ADMINISTRATION [None]
  - PRURITUS [None]
  - PYREXIA [None]
  - SENSATION OF FOREIGN BODY [None]
  - SINUSITIS [None]
  - TENSION [None]
